FAERS Safety Report 8362915-1 (Version None)
Quarter: 2012Q2

REPORT INFORMATION
  Report Type: 
  Country: None (occurrence: None)
  Receive Date: 20120514
  Receipt Date: 20120514
  Transmission Date: 20120825
  Serious: Yes (Hospitalization)
  Sender: FDA-Public Use
  Company Number: None

PATIENT
  Age: 73 Year
  Sex: Male

DRUGS (1)
  1. DAPTOMYCIN [Suspect]
     Indication: MYOSITIS
     Dosage: 500 MG DAILY IV
     Route: 042
     Dates: start: 20120421, end: 20120501

REACTIONS (1)
  - EOSINOPHILIC PNEUMONIA [None]
